FAERS Safety Report 18383135 (Version 1)
Quarter: 2020Q4

REPORT INFORMATION
  Report Type: Spontaneous
  Country: DE (occurrence: DE)
  Receive Date: 20201014
  Receipt Date: 20201014
  Transmission Date: 20210114
  Serious: No
  Sender: FDA-Public Use
  Company Number: DE-HORMOSAN PHARMA GMBH-2019-08263

PATIENT
  Sex: Female

DRUGS (1)
  1. MUNALEA 30 0.03 MG/0.15 MG FILMTABLETTEN [Suspect]
     Active Substance: DESOGESTREL\ETHINYL ESTRADIOL
     Indication: PRODUCT USED FOR UNKNOWN INDICATION
     Dosage: UNK
     Route: 065

REACTIONS (1)
  - Back pain [Recovering/Resolving]
